FAERS Safety Report 7557886-1 (Version None)
Quarter: 2011Q2

REPORT INFORMATION
  Report Type: 
  Country: None (occurrence: None)
  Receive Date: 20110620
  Receipt Date: 20110610
  Transmission Date: 20111010
  Serious: Yes (Hospitalization)
  Sender: FDA-Public Use
  Company Number: A0861787A

PATIENT
  Age: 58 Year
  Sex: Male

DRUGS (1)
  1. AVANDIA [Suspect]
     Indication: DIABETES MELLITUS
     Route: 048
     Dates: end: 20000101

REACTIONS (4)
  - CARDIAC DISORDER [None]
  - HYPERGLYCAEMIA [None]
  - FATIGUE [None]
  - MYOCARDIAL INFARCTION [None]
